FAERS Safety Report 6584071-2 (Version None)
Quarter: 2010Q1

REPORT INFORMATION
  Report Type: 
  Country: None (occurrence: None)
  Receive Date: 20100216
  Receipt Date: 20091212
  Transmission Date: 20100710
  Serious: No
  Sender: FDA-Public Use
  Company Number: US-ABBOTT-09P-163-0613862-00

PATIENT
  Sex: Male

DRUGS (1)
  1. SIMCOR [Suspect]
     Indication: HYPERCHOLESTEROLAEMIA
     Dosage: 500/20 MG
     Route: 048
     Dates: start: 20091211

REACTIONS (1)
  - PRURITUS [None]
